FAERS Safety Report 9129194 (Version 1)
Quarter: 2013Q1

REPORT INFORMATION
  Report Type: Spontaneous
  Country: US (occurrence: US)
  Receive Date: 20130228
  Receipt Date: 20130228
  Transmission Date: 20140127
  Serious: Yes (Other)
  Sender: FDA-Public Use
  Company Number: US-FRI-S07-USA-05868-01

PATIENT
  Age: 61 Year
  Sex: Female

DRUGS (8)
  1. ARMOUR THYROID [Suspect]
     Indication: HYPOTHYROIDISM
     Dosage: 120MG
     Route: 048
     Dates: start: 2005, end: 20120405
  2. ARMOUR THYROID [Suspect]
     Dosage: 90MG
     Route: 048
     Dates: start: 20120406
  3. VICODIN [Concomitant]
     Indication: ARTHRITIS
  4. LOPRESSOR [Concomitant]
     Indication: HYPERTENSION
  5. DESOXYN [Concomitant]
     Indication: ATTENTION DEFICIT/HYPERACTIVITY DISORDER
  6. COMPAZINE [Concomitant]
     Indication: NAUSEA
  7. FLONASE [Concomitant]
     Indication: SINUS DISORDER
  8. VIOKASE [Concomitant]
     Indication: DYSPEPSIA

REACTIONS (3)
  - Cerebrovascular accident [Recovered/Resolved with Sequelae]
  - Depressed mood [Unknown]
  - Alopecia [Unknown]
